FAERS Safety Report 16828169 (Version 1)
Quarter: 2019Q3

REPORT INFORMATION
  Report Type: Spontaneous
  Country: NL (occurrence: FR)
  Receive Date: 20190919
  Receipt Date: 20190919
  Transmission Date: 20191005
  Serious: Yes (Hospitalization)
  Sender: FDA-Public Use
  Company Number: FR-FRESENIUS KABI-FK201910136

PATIENT
  Age: 57 Year
  Sex: Female
  Weight: 88 kg

DRUGS (1)
  1. PACLITAXEL (MANUFACTURER UNKNOWN) [Suspect]
     Active Substance: PACLITAXEL
     Indication: BREAST CANCER
     Route: 042
     Dates: start: 201810, end: 20190226

REACTIONS (1)
  - Capillary leak syndrome [Recovered/Resolved]

NARRATIVE: CASE EVENT DATE: 20190226
